FAERS Safety Report 8621582-X (Version None)
Quarter: 2012Q3

REPORT INFORMATION
  Report Type: 
  Country: None (occurrence: None)
  Receive Date: 20120820
  Receipt Date: 20120820
  Transmission Date: 20120928
  Serious: Yes (Hospitalization)
  Sender: FDA-Public Use
  Company Number: None

PATIENT
  Age: 66 Year
  Sex: Male
  Weight: 90.7194 kg

DRUGS (15)
  1. PLAVIX [Suspect]
     Indication: PERIPHERAL VASCULAR DISORDER
     Dosage: 75 MG DAILY PO
     Route: 048
  2. FISH OIL [Concomitant]
  3. HUMULIN R [Concomitant]
  4. MULTIIVITAMIN [Concomitant]
  5. CARDURA [Concomitant]
  6. ASPIRIN [Suspect]
     Indication: CARDIOVASCULAR EVENT PROPHYLAXIS
     Dosage: 81 MG DAILY PO
     Route: 048
  7. ASPIRIN [Suspect]
     Indication: DIABETES MELLITUS
     Dosage: 81 MG DAILY PO
     Route: 048
  8. VITAMIN D [Concomitant]
  9. NEPHRO-VITE [Concomitant]
  10. HYDRALAZINE HCL [Concomitant]
  11. RANITIDINE [Concomitant]
  12. TEGRETOL [Concomitant]
  13. LABETAOLOL [Concomitant]
  14. LOSARTAN POTASSIUM [Concomitant]
  15. RENVELA [Concomitant]

REACTIONS (6)
  - GASTRIC MUCOSAL LESION [None]
  - HAEMATEMESIS [None]
  - ANAEMIA [None]
  - UPPER GASTROINTESTINAL HAEMORRHAGE [None]
  - FAECES DISCOLOURED [None]
  - GASTRIC ULCER [None]
